FAERS Safety Report 15826215 (Version 4)
Quarter: 2019Q2

REPORT INFORMATION
  Report Type: Spontaneous
  Country: FR (occurrence: FR)
  Receive Date: 20190115
  Receipt Date: 20190610
  Transmission Date: 20190711
  Serious: Yes (Other)
  Sender: FDA-Public Use
  Company Number: FR-PFIZER INC-2018529401

PATIENT
  Age: 41 Year
  Sex: Female

DRUGS (24)
  1. DOCETAXEL. [Suspect]
     Active Substance: DOCETAXEL
     Dosage: 180 MG, SINGLE
     Route: 042
     Dates: start: 20120125, end: 20120125
  2. FLUOROURACIL. [Suspect]
     Active Substance: FLUOROURACIL
     Dosage: 900 MG, SINGLE
     Route: 042
     Dates: start: 20111026, end: 20111026
  3. DOCETAXEL. [Suspect]
     Active Substance: DOCETAXEL
     Dosage: 180 MG, SINGLE
     Route: 042
     Dates: start: 20120215, end: 20120215
  4. DEXAMETHASONE. [Concomitant]
     Active Substance: DEXAMETHASONE
     Dosage: 8 MG, DAILY
     Route: 048
     Dates: start: 20120125, end: 20120126
  5. ZOPHREN [ONDANSETRON HYDROCHLORIDE] [Concomitant]
     Active Substance: ONDANSETRON
     Dosage: 8 MG, SINGLE
     Route: 042
     Dates: start: 20111026, end: 20111026
  6. DEXAMETHASONE. [Concomitant]
     Active Substance: DEXAMETHASONE
     Dosage: 8 MG, DAILY
     Route: 048
     Dates: start: 20120104, end: 20120105
  7. EPIRUBICIN HCL [Suspect]
     Active Substance: EPIRUBICIN HYDROCHLORIDE
     Dosage: 180 MG, SINGLE
     Route: 042
     Dates: start: 20111026, end: 20111026
  8. EPIRUBICIN HCL [Suspect]
     Active Substance: EPIRUBICIN HYDROCHLORIDE
     Dosage: 180 MG, SINGLE
     Route: 042
     Dates: start: 20111116, end: 20111116
  9. EPIRUBICIN HCL [Suspect]
     Active Substance: EPIRUBICIN HYDROCHLORIDE
     Dosage: 180 MG, SINGLE
     Route: 042
     Dates: start: 20111207, end: 20111207
  10. FLUOROURACIL. [Suspect]
     Active Substance: FLUOROURACIL
     Dosage: 900 MG, SINGLE
     Route: 042
     Dates: start: 20111116, end: 20111116
  11. TAMOXIFEN CITRATE. [Suspect]
     Active Substance: TAMOXIFEN CITRATE
     Dosage: UNK
     Dates: start: 2011
  12. NOLVADEX D [Suspect]
     Active Substance: TAMOXIFEN CITRATE
     Indication: BREAST CANCER FEMALE
     Dosage: UNK
     Dates: start: 20120501
  13. ZOPHREN [ONDANSETRON HYDROCHLORIDE] [Concomitant]
     Active Substance: ONDANSETRON
     Dosage: 8 MG, SINGLE
     Route: 042
     Dates: start: 20111116, end: 20111116
  14. ZOPHREN [ONDANSETRON HYDROCHLORIDE] [Concomitant]
     Active Substance: ONDANSETRON
     Dosage: 8 MG, SINGLE
     Route: 042
     Dates: start: 20120125, end: 20120125
  15. DOCETAXEL. [Suspect]
     Active Substance: DOCETAXEL
     Indication: BREAST CANCER FEMALE
     Dosage: 180 MG, SINGLE
     Route: 042
     Dates: start: 20120104, end: 20120104
  16. FLUOROURACIL. [Suspect]
     Active Substance: FLUOROURACIL
     Dosage: 900 MG, SINGLE
     Route: 042
     Dates: start: 20111207, end: 20111207
  17. TAXOTERE [Suspect]
     Active Substance: DOCETAXEL
     Dosage: 3 COURSES
  18. ZOPHREN [ONDANSETRON HYDROCHLORIDE] [Concomitant]
     Active Substance: ONDANSETRON
     Dosage: 8 MG, SINGLE
     Route: 042
     Dates: start: 20111207, end: 20111207
  19. CYCLOPHOSPHAMIDE. [Suspect]
     Active Substance: CYCLOPHOSPHAMIDE
     Dosage: 900 MG, SINGLE
     Route: 042
     Dates: start: 20111116, end: 20111116
  20. ZOPHREN [ONDANSETRON HYDROCHLORIDE] [Concomitant]
     Active Substance: ONDANSETRON
     Dosage: 8 MG, SINGLE
     Route: 042
     Dates: start: 20120104, end: 20120104
  21. CYCLOPHOSPHAMIDE. [Suspect]
     Active Substance: CYCLOPHOSPHAMIDE
     Dosage: 900 MG, SINGLE
     Route: 042
     Dates: start: 20111026, end: 20111026
  22. CYCLOPHOSPHAMIDE. [Suspect]
     Active Substance: CYCLOPHOSPHAMIDE
     Dosage: 900 MG, SINGLE
     Route: 042
     Dates: start: 20111207, end: 20111207
  23. ZOPHREN [ONDANSETRON HYDROCHLORIDE] [Concomitant]
     Active Substance: ONDANSETRON
     Dosage: 8 MG, SINGLE
     Route: 042
     Dates: start: 20120215, end: 20120215
  24. DEXAMETHASONE. [Concomitant]
     Active Substance: DEXAMETHASONE
     Dosage: 8 MG, DAILY
     Route: 048
     Dates: start: 20120215, end: 20120216

REACTIONS (44)
  - Pain [Unknown]
  - Arthralgia [Unknown]
  - Chills [Unknown]
  - Vulvovaginal dryness [Unknown]
  - Muscle spasms [Unknown]
  - Facial pain [Unknown]
  - Dizziness [Unknown]
  - Visual impairment [Unknown]
  - Mucosal toxicity [Unknown]
  - Disturbance in attention [Unknown]
  - Herpes zoster [Unknown]
  - Platelet count decreased [Unknown]
  - Skin sensitisation [Unknown]
  - Muscle contracture [Unknown]
  - Pain in extremity [Unknown]
  - Nausea [Unknown]
  - Visual acuity reduced [Unknown]
  - Skin toxicity [Unknown]
  - Tooth disorder [Unknown]
  - Gait disturbance [Unknown]
  - Hot flush [Unknown]
  - Depressive symptom [Unknown]
  - Menorrhagia [Unknown]
  - Tetany [Unknown]
  - Insomnia [Unknown]
  - Disturbance in attention [Unknown]
  - Neuralgia [Unknown]
  - Hallucination [Unknown]
  - Cognitive disorder [Unknown]
  - Neuropathy peripheral [Unknown]
  - Dysstasia [Unknown]
  - Weight increased [Recovering/Resolving]
  - Periostitis [Unknown]
  - Gingival pain [Unknown]
  - Paraesthesia [Unknown]
  - Pathological fracture [Unknown]
  - Hepatocellular injury [Recovering/Resolving]
  - Fatigue [Unknown]
  - Tinnitus [Unknown]
  - Emotional disorder [Unknown]
  - Sensory loss [Unknown]
  - Vomiting [Unknown]
  - Loss of libido [Unknown]
  - Ageusia [Unknown]

NARRATIVE: CASE EVENT DATE: 20111017
